FAERS Safety Report 7025429-7 (Version None)
Quarter: 2010Q4

REPORT INFORMATION
  Report Type: 
  Country: None (occurrence: None)
  Receive Date: 20101001
  Receipt Date: 20100927
  Transmission Date: 20110411
  Serious: Yes (Other)
  Sender: FDA-Public Use
  Company Number: PHHY2010GR64010

PATIENT
  Age: 46 Year
  Sex: Female

DRUGS (1)
  1. EXTAVIA [Suspect]
     Dosage: UNK
     Dates: start: 20100913

REACTIONS (3)
  - ABDOMINAL DISCOMFORT [None]
  - AGITATION [None]
  - INSOMNIA [None]
